FAERS Safety Report 10638991 (Version 2)
Quarter: 2015Q3

REPORT INFORMATION
  Report Type: Spontaneous
  Country: US (occurrence: US)
  Receive Date: 20141208
  Receipt Date: 20150805
  Transmission Date: 20151125
  Serious: Yes (Hospitalization)
  Sender: FDA-Public Use
  Company Number: US-BAYER-2014-178109

PATIENT
  Age: 32 Year
  Sex: Female
  Weight: 86.17 kg

DRUGS (1)
  1. MIRENA [Suspect]
     Active Substance: LEVONORGESTREL
     Indication: CONTRACEPTION
     Dosage: 20 MCG/24HR, CONT
     Route: 015
     Dates: start: 200604, end: 201111

REACTIONS (8)
  - Off label use of device [None]
  - Uterine perforation [Recovered/Resolved]
  - Injury [Recovered/Resolved]
  - Abdominal pain [Recovered/Resolved]
  - Pelvic pain [Recovered/Resolved]
  - Device issue [Recovered/Resolved]
  - Device use error [None]
  - Device difficult to use [None]

NARRATIVE: CASE EVENT DATE: 2011
